FAERS Safety Report 8303669-4 (Version None)
Quarter: 2012Q2

REPORT INFORMATION
  Report Type: 
  Country: None (occurrence: None)
  Receive Date: 20120423
  Receipt Date: 20120416
  Transmission Date: 20120825
  Serious: Yes (Other)
  Sender: FDA-Public Use
  Company Number: US-PFIZER INC-2012094130

PATIENT
  Sex: Female

DRUGS (2)
  1. VIAGRA [Suspect]
     Dosage: UNK
  2. XALATAN [Suspect]
     Dosage: UNK

REACTIONS (2)
  - HERPES ZOSTER [None]
  - GLAUCOMA [None]
